FAERS Safety Report 12921939 (Version 1)
Quarter: 2016Q4

REPORT INFORMATION
  Report Type: Spontaneous
  Country: US (occurrence: US)
  Receive Date: 20161108
  Receipt Date: 20161108
  Transmission Date: 20170207
  Serious: No
  Sender: FDA-Public Use
  Company Number: US-BAUSCH-BL-2016-011332

PATIENT
  Age: 74 Year
  Sex: Male

DRUGS (1)
  1. ZIRGAN [Suspect]
     Active Substance: GANCICLOVIR
     Indication: THERAPEUTIC SKIN CARE TOPICAL
     Dosage: ONE APPLICATION ONCE A DAY TO THE LEFT EYE
     Route: 047
     Dates: start: 20160430, end: 20160504

REACTIONS (2)
  - Drug administration error [Not Recovered/Not Resolved]
  - No adverse event [Unknown]

NARRATIVE: CASE EVENT DATE: 20160430
